FAERS Safety Report 17375173 (Version 2)
Quarter: 2020Q1

REPORT INFORMATION
  Report Type: Spontaneous
  Country: US (occurrence: US)
  Receive Date: 20200205
  Receipt Date: 20200211
  Transmission Date: 20200409
  Serious: No
  Sender: FDA-Public Use
  Company Number: US-PFIZER INC-2020048099

PATIENT

DRUGS (1)
  1. XALKORI [Suspect]
     Active Substance: CRIZOTINIB
     Indication: LUNG NEOPLASM MALIGNANT
     Dosage: UNK

REACTIONS (5)
  - Eye swelling [Unknown]
  - Drug hypersensitivity [Unknown]
  - Lip swelling [Unknown]
  - Swollen tongue [Unknown]
  - Nausea [Unknown]
